FAERS Safety Report 4610547-0 (Version None)
Quarter: 2005Q1

REPORT INFORMATION
  Report Type: 
  Country: None (occurrence: None)
  Receive Date: 20050316
  Receipt Date: 20050311
  Transmission Date: 20050727
  Serious: Yes (Other)
  Sender: FDA-Public Use
  Company Number: 004372

PATIENT
  Age: 64 Year
  Sex: Female

DRUGS (3)
  1. ESTRADIOL [Suspect]
     Dosage: ORAL
     Route: 048
     Dates: start: 19850101, end: 20010101
  2. PREMARIN [Suspect]
     Dosage: ORAL
     Route: 048
     Dates: start: 19850101, end: 20010101
  3. CENESTIN [Suspect]
     Dates: start: 20010101, end: 20030101

REACTIONS (2)
  - OVARIAN CANCER [None]
  - PHARMACEUTICAL PRODUCT COMPLAINT [None]
